FAERS Safety Report 5573954-8 (Version None)
Quarter: 2007Q4

REPORT INFORMATION
  Report Type: 
  Country: None (occurrence: None)
  Receive Date: 20071220
  Receipt Date: 20071206
  Transmission Date: 20080405
  Serious: Yes (Death, Other)
  Sender: FDA-Public Use
  Company Number: 071127-0001305

PATIENT
  Sex: Male

DRUGS (5)
  1. INDOCIN I.V. [Suspect]
     Indication: PATENT DUCTUS ARTERIOSUS
     Dates: start: 20071030, end: 20071102
  2. INDOCIN I.V. [Suspect]
     Indication: PROPHYLAXIS
     Dates: start: 20071030, end: 20071102
  3. INDOCIN I.V. [Suspect]
     Indication: PATENT DUCTUS ARTERIOSUS
     Dates: start: 20071105, end: 20071106
  4. INDOCIN I.V. [Suspect]
     Indication: PROPHYLAXIS
     Dates: start: 20071105, end: 20071106
  5. SURFACTANT [Concomitant]

REACTIONS (2)
  - ACUTE ABDOMEN [None]
  - GASTROINTESTINAL PERFORATION [None]
